FAERS Safety Report 20430812 (Version 1)
Quarter: 2022Q1

REPORT INFORMATION
  Report Type: Report from Study
  Country: FR (occurrence: FR)
  Receive Date: 20220204
  Receipt Date: 20220204
  Transmission Date: 20220423
  Serious: Yes (Hospitalization)
  Sender: FDA-Public Use
  Company Number: FR-SERVIER-S21006110

PATIENT

DRUGS (6)
  1. PEGASPARGASE [Suspect]
     Active Substance: PEGASPARGASE
     Indication: Acute lymphocytic leukaemia
     Dosage: 750 IU, ON D8, D36, AND D64
     Route: 042
     Dates: start: 20191220, end: 20200319
  2. TN UNSPECIFIED [Concomitant]
     Indication: Acute lymphocytic leukaemia
     Dosage: 0.9 MG ON D1, D8, D29, D36, AND D57
     Route: 042
     Dates: start: 20191213, end: 20200319
  3. TN UNSPECIFIED [Concomitant]
     Indication: Acute lymphocytic leukaemia
     Dosage: 3.6 MG ON D1, D8, D29, D36, AND D57
     Route: 048
     Dates: start: 20191213, end: 20200319
  4. TN UNSPECIFIED [Concomitant]
     Indication: Acute lymphocytic leukaemia
     Dosage: 12 MG ON D2, D30, AND D57
     Route: 037
     Dates: start: 20191214, end: 20200312
  5. TN UNSPECIFIED [Concomitant]
     Dosage: 15 MG ON D8, D15, D22, D36, D43, D50, D64, D71, D78
     Route: 048
     Dates: start: 20191220, end: 20200402
  6. TN UNSPECIFIED [Concomitant]
     Indication: Acute lymphocytic leukaemia
     Dosage: 30 MG ON D1, D21, D29, D49, AND D57
     Route: 048
     Dates: start: 20191213, end: 20200401

REACTIONS (1)
  - Staphylococcal bacteraemia [Recovered/Resolved]

NARRATIVE: CASE EVENT DATE: 20200228
